FAERS Safety Report 17109040 (Version 1)
Quarter: 2019Q4

REPORT INFORMATION
  Report Type: Spontaneous
  Country: JP (occurrence: JP)
  Receive Date: 20191204
  Receipt Date: 20191204
  Transmission Date: 20200122
  Serious: Yes (Hospitalization)
  Sender: FDA-Public Use
  Company Number: JP-TEVA-2019-JP-1146330

PATIENT
  Age: 67 Year
  Sex: Male

DRUGS (4)
  1. DABIGATRAN [Concomitant]
     Active Substance: DABIGATRAN
     Indication: CEREBRAL INFARCTION
     Dosage: 300 MILLIGRAM DAILY;
     Route: 048
  2. SALAZOSULFAPYRIDINE [Suspect]
     Active Substance: SULFASALAZINE
     Indication: RHEUMATIC DISORDER
     Dosage: 1000 MILLIGRAM DAILY; DOSE INCREASED AFTER 7 DAYS.
     Route: 048
  3. LEVETIRACETAM. [Concomitant]
     Active Substance: LEVETIRACETAM
     Indication: SEIZURE PROPHYLAXIS
     Dosage: 1000 MILLIGRAM DAILY;
     Route: 065
  4. SALAZOSULFAPYRIDINE [Suspect]
     Active Substance: SULFASALAZINE
     Indication: RHEUMATIC DISORDER
     Dosage: 500 MILLIGRAM DAILY;
     Route: 048

REACTIONS (8)
  - Condition aggravated [Unknown]
  - Respiratory disorder [Unknown]
  - Diarrhoea [Unknown]
  - Cytomegalovirus infection [Unknown]
  - Drug reaction with eosinophilia and systemic symptoms [Unknown]
  - Pericardial effusion [Recovered/Resolved]
  - Human herpesvirus 6 infection [Unknown]
  - Stomatitis [Unknown]
